FAERS Safety Report 13645986 (Version 2)
Quarter: 2017Q4

REPORT INFORMATION
  Report Type: Spontaneous
  Country: US (occurrence: US)
  Receive Date: 20170613
  Receipt Date: 20171128
  Transmission Date: 20180320
  Serious: Yes (Other)
  Sender: FDA-Public Use
  Company Number: US-AUROBINDO-AUR-APL-2017-35168

PATIENT
  Age: 81 Year
  Sex: Male

DRUGS (2)
  1. ATOVAQUONE. [Suspect]
     Active Substance: ATOVAQUONE
     Indication: BABESIOSIS
     Dosage: 750 MG, TWO TIMES A DAY
     Route: 065
  2. AZITHROMYCIN 500 MG [Suspect]
     Active Substance: AZITHROMYCIN ANHYDROUS
     Indication: BABESIOSIS
     Dosage: 500 MG, DAILY
     Route: 065

REACTIONS (3)
  - Condition aggravated [Unknown]
  - Drug resistance [Unknown]
  - Treatment failure [Unknown]
